FAERS Safety Report 14872573 (Version 7)
Quarter: 2020Q3

REPORT INFORMATION
  Report Type: Report from Study
  Country: GB (occurrence: GB)
  Receive Date: 20180510
  Receipt Date: 20181029
  Transmission Date: 20201104
  Serious: Yes (Hospitalization)
  Sender: FDA-Public Use
  Company Number: PHHO2018GB005748

PATIENT
  Age: 40 Year
  Sex: Male
  Weight: 81 kg

DRUGS (9)
  1. PDR001 [Suspect]
     Active Substance: SPARTALIZUMAB
     Indication: MALIGNANT MELANOMA
     Dosage: 400 MG, Q4W
     Route: 042
     Dates: start: 20180329, end: 20180329
  2. AVEENO [Concomitant]
     Active Substance: DIMETHICONE\HOMOSALATE\OCTINOXATE\OCTISALATE\TITANIUM DIOXIDE
     Indication: DRY SKIN PROPHYLAXIS
     Dosage: 1 APPLICATION
     Route: 065
     Dates: start: 201708
  3. LYMECYCLINE [Concomitant]
     Active Substance: LYMECYCLINE
     Indication: RASH
     Dosage: 408 MG, QD
     Route: 065
     Dates: start: 20180208
  4. TRAMETINIB [Suspect]
     Active Substance: TRAMETINIB
     Indication: MALIGNANT MELANOMA
     Dosage: 2 MG, QD
     Route: 048
     Dates: start: 20180328, end: 20180422
  5. DABRAFENIB [Suspect]
     Active Substance: DABRAFENIB
     Indication: MALIGNANT MELANOMA
     Dosage: 150 MG, BID
     Route: 048
     Dates: start: 20180328, end: 20180422
  6. HEXITOL [Concomitant]
     Indication: DRY SKIN PROPHYLAXIS
     Dosage: 1 APPLICATION
     Route: 065
     Dates: start: 201708
  7. PARACETAMOL [Concomitant]
     Active Substance: ACETAMINOPHEN
     Indication: PAIN
     Dosage: 1 G, PRN
     Route: 065
     Dates: start: 201802
  8. ELOCON [Concomitant]
     Active Substance: MOMETASONE FUROATE
     Indication: PRODUCT USED FOR UNKNOWN INDICATION
     Dosage: 1 APPLICATION AM
     Route: 065
     Dates: start: 20180420
  9. NO TREATMENT RECEIVED [Suspect]
     Active Substance: UNSPECIFIED INGREDIENT
     Indication: MALIGNANT MELANOMA
     Dosage: NO TREATMENT
     Route: 065

REACTIONS (1)
  - Dermatitis exfoliative generalised [Recovered/Resolved]

NARRATIVE: CASE EVENT DATE: 20180426
